FAERS Safety Report 17782260 (Version 1)
Quarter: 2020Q2

REPORT INFORMATION
  Report Type: Report from Study
  Country: US (occurrence: US)
  Receive Date: 20200513
  Receipt Date: 20200513
  Transmission Date: 20200714
  Serious: No
  Sender: FDA-Public Use
  Company Number: US-ACADIA PHARMACEUTICALS INC.-ACA-2020-PIM-000839

PATIENT
  Sex: Male

DRUGS (1)
  1. NUPLAZID [Suspect]
     Active Substance: PIMAVANSERIN TARTRATE
     Indication: PARKINSON^S DISEASE
     Dosage: UNKNOWN
     Route: 048

REACTIONS (5)
  - Head injury [Unknown]
  - Insomnia [Unknown]
  - Abnormal behaviour [Unknown]
  - Fall [Unknown]
  - Hallucination, visual [Unknown]
